FAERS Safety Report 9813795 (Version 1)
Quarter: 2014Q1

REPORT INFORMATION
  Report Type: Spontaneous
  Country: US (occurrence: US)
  Receive Date: 20140113
  Receipt Date: 20140113
  Transmission Date: 20141002
  Serious: No
  Sender: FDA-Public Use
  Company Number: US-009507513-1401USA004861

PATIENT
  Sex: Female

DRUGS (4)
  1. LISINOPRIL [Suspect]
     Dosage: UNK
     Route: 058
  2. LISINOPRIL [Suspect]
     Route: 058
     Dates: start: 20130717, end: 20130717
  3. LISINOPRIL [Suspect]
     Route: 058
     Dates: start: 20130814, end: 20130814
  4. LISINOPRIL [Suspect]
     Route: 058
     Dates: start: 20130904, end: 20130904

REACTIONS (1)
  - Drug hypersensitivity [Unknown]
